FAERS Safety Report 23064158 (Version 4)
Quarter: 2024Q3

REPORT INFORMATION
  Report Type: Spontaneous
  Country: US (occurrence: US)
  Receive Date: 20231013
  Receipt Date: 20240913
  Transmission Date: 20241017
  Serious: No
  Sender: BOEHRINGER INGELHEIM
  Company Number: US-BoehringerIngelheim-2023-BI-266508

PATIENT
  Age: 65 Year
  Sex: Male

DRUGS (2)
  1. TRIJARDY XR [Suspect]
     Active Substance: EMPAGLIFLOZIN\LINAGLIPTIN\METFORMIN HYDROCHLORIDE
     Indication: Type 2 diabetes mellitus
     Route: 048
     Dates: start: 2021
  2. MELATONIN [Concomitant]
     Active Substance: MELATONIN
     Indication: Product used for unknown indication

REACTIONS (7)
  - Foot operation [Unknown]
  - Gait disturbance [Unknown]
  - Blood glucose increased [Unknown]
  - Heat stroke [Unknown]
  - Fall [Unknown]
  - Concussion [Unknown]
  - Product physical issue [Unknown]

NARRATIVE: CASE EVENT DATE: 20240705
